FAERS Safety Report 18102930 (Version 2)
Quarter: 2020Q3

REPORT INFORMATION
  Report Type: Spontaneous
  Country: US (occurrence: US)
  Receive Date: 20200803
  Receipt Date: 20200826
  Transmission Date: 20201103
  Serious: Yes (Other)
  Sender: FDA-Public Use
  Company Number: US-STRIDES ARCOLAB LIMITED-2020SP008664

PATIENT
  Age: 50 Year
  Sex: Male
  Weight: 92 kg

DRUGS (2)
  1. TACROLIMUS. [Suspect]
     Active Substance: TACROLIMUS
     Indication: LIVER TRANSPLANT
     Dosage: UNK
     Route: 065
  2. MYCOPHENOLATE MOFETIL. [Suspect]
     Active Substance: MYCOPHENOLATE MOFETIL
     Indication: LIVER TRANSPLANT
     Dosage: 180 MILLIGRAM, BID
     Route: 065

REACTIONS (7)
  - Portal fibrosis [Unknown]
  - Hepatic function abnormal [Unknown]
  - Hepatic steatosis [Unknown]
  - Hepatitis C [Unknown]
  - Portal tract inflammation [Unknown]
  - Weight increased [Recovered/Resolved]
  - Steatohepatitis [Unknown]
